FAERS Safety Report 8771652 (Version 1)
Quarter: 2012Q4

REPORT INFORMATION
  Report Type: 
  Country: US (occurrence: US)
  Receive Date: 20120905
  Receipt Date: 20120905
  Transmission Date: 20130627
  Serious: Yes (Other)
  Sender: FDA-Public Use
  Company Number: US-ASTRAZENECA-2012SE65058

PATIENT
  Age: 716 Month
  Sex: Male

DRUGS (1)
  1. NEXIUM [Suspect]
     Route: 048
     Dates: end: 201201

REACTIONS (3)
  - Benign neoplasm [Unknown]
  - Barrett^s oesophagus [Unknown]
  - Intentional drug misuse [Unknown]
